FAERS Safety Report 5836341-0 (Version None)
Quarter: 2008Q3

REPORT INFORMATION
  Report Type: 
  Country: None (occurrence: None)
  Receive Date: 20080807
  Receipt Date: 20080730
  Transmission Date: 20090109
  Serious: Yes (Life-Threatening)
  Sender: FDA-Public Use
  Company Number: JP-JNJFOC-20080606110

PATIENT
  Sex: Female

DRUGS (6)
  1. CRAVIT [Suspect]
     Indication: ENTERITIS INFECTIOUS
     Route: 048
  2. AMARYL [Suspect]
     Indication: DIABETES MELLITUS
     Route: 048
  3. WARFARIN SODIUM [Concomitant]
  4. ALBUMIN TANNATE [Concomitant]
  5. BASEN [Concomitant]
  6. MIYA-BM [Concomitant]

REACTIONS (3)
  - HEADACHE [None]
  - IDIOPATHIC THROMBOCYTOPENIC PURPURA [None]
  - NAUSEA [None]
